FAERS Safety Report 15223088 (Version 1)
Quarter: 2018Q3

REPORT INFORMATION
  Report Type: Spontaneous
  Country: CO (occurrence: CO)
  Receive Date: 20180731
  Receipt Date: 20180731
  Transmission Date: 20181010
  Serious: Yes (Life-Threatening, Hospitalization)
  Sender: FDA-Public Use
  Company Number: CO-MYLANLABS-2018M1056967

PATIENT
  Age: 71 Year
  Sex: Female

DRUGS (1)
  1. FLUOROURACIL. [Suspect]
     Active Substance: FLUOROURACIL
     Indication: COLORECTAL CANCER
     Route: 050

REACTIONS (5)
  - Mucosal inflammation [Unknown]
  - Respiratory failure [Recovered/Resolved]
  - Bone marrow failure [Unknown]
  - Shock [Unknown]
  - Pulmonary alveolar haemorrhage [Recovered/Resolved]
